FAERS Safety Report 5482649-0 (Version None)
Quarter: 2007Q4

REPORT INFORMATION
  Report Type: 
  Country: None (occurrence: None)
  Receive Date: 20071011
  Receipt Date: 20070927
  Transmission Date: 20080405
  Serious: Yes (Death)
  Sender: FDA-Public Use
  Company Number: ES-PURDUE-GBR_2007_0003328

PATIENT
  Age: 64 Year
  Sex: Male

DRUGS (6)
  1. MST CONTINUS TABLETS 10 MG [Suspect]
     Indication: PAIN
     Dosage: 10 MG, UNK
     Route: 048
     Dates: start: 20070713, end: 20070714
  2. HALOPERIDOL [Suspect]
     Indication: PAIN
     Route: 042
     Dates: start: 20070717
  3. DURAGESIC-100 [Suspect]
     Indication: PAIN
     Dosage: 25 MCG, Q1H
     Route: 062
     Dates: start: 20070715
  4. SINOGAN [Suspect]
     Indication: PAIN
     Dosage: 1 ML, UNK
     Route: 030
     Dates: start: 20070717
  5. MORPHINE CHLORIDE [Suspect]
     Indication: PAIN
     Dosage: UNK, UNK
     Route: 042
     Dates: start: 20070710
  6. DORMICUM FOR INJECTION [Suspect]
     Indication: PAIN
     Dosage: 5 MG/5ML
     Route: 042
     Dates: start: 20070717

REACTIONS (2)
  - DISEASE PROGRESSION [None]
  - HYPONATRAEMIA [None]
